FAERS Safety Report 7038651-0 (Version None)
Quarter: 2010Q4

REPORT INFORMATION
  Report Type: 
  Country: None (occurrence: None)
  Receive Date: 20101011
  Receipt Date: 20100929
  Transmission Date: 20110411
  Serious: No
  Sender: FDA-Public Use
  Company Number: US-PFIZER INC-2010124513

PATIENT
  Sex: Female
  Weight: 63.492 kg

DRUGS (6)
  1. TOVIAZ [Suspect]
     Indication: STRESS URINARY INCONTINENCE
     Dosage: 4 MG, DAILY
     Route: 048
     Dates: start: 20100927
  2. HYDROCHLOROTHIAZIDE [Concomitant]
     Indication: BLOOD PRESSURE INCREASED
     Dosage: 25 MG, DAILY
     Route: 048
  3. VERAPAMIL [Concomitant]
     Indication: BLOOD PRESSURE INCREASED
     Dosage: 180 MG, DAILY
     Route: 048
  4. AVAPRO [Concomitant]
     Indication: BLOOD PRESSURE INCREASED
     Dosage: 300 MG, DAILY
     Route: 048
  5. CALCIUM [Concomitant]
     Indication: BONE DISORDER
     Dosage: 600 MG, 2X/DAY
     Route: 048
  6. ACETYLSALICYLIC ACID [Concomitant]
     Indication: CARDIOVASCULAR EVENT PROPHYLAXIS
     Dosage: 81 MG, DAILY
     Route: 048

REACTIONS (1)
  - SENSATION OF FOREIGN BODY [None]
